FAERS Safety Report 7208145-8 (Version None)
Quarter: 2010Q4

REPORT INFORMATION
  Report Type: 
  Country: None (occurrence: None)
  Receive Date: 20101230
  Receipt Date: 20101230
  Transmission Date: 20110411
  Serious: Yes (Life-Threatening, Hospitalization, Disabling)
  Sender: FDA-Public Use
  Company Number: None

PATIENT
  Sex: Female
  Weight: 87.9978 kg

DRUGS (1)
  1. PROTOPIC [Suspect]
     Indication: VITILIGO
     Dosage: 1 LAYER TWICE BODY AREA NEEDED
     Dates: start: 20070723, end: 20101118

REACTIONS (8)
  - ABDOMINAL HERNIA [None]
  - ATELECTASIS [None]
  - COLECTOMY [None]
  - COLLAPSE OF LUNG [None]
  - FULL BLOOD COUNT ABNORMAL [None]
  - HEART RATE DECREASED [None]
  - PNEUMONIA [None]
  - UMBILICAL HERNIA [None]
